FAERS Safety Report 13156331 (Version 3)
Quarter: 2017Q2

REPORT INFORMATION
  Report Type: Spontaneous
  Country: GB (occurrence: GB)
  Receive Date: 20170126
  Receipt Date: 20170525
  Transmission Date: 20170830
  Serious: Yes (Life-Threatening)
  Sender: FDA-Public Use
  Company Number: GB-BRACCO-001144

PATIENT
  Age: 33 Year
  Sex: Male

DRUGS (2)
  1. NIOPAM [Suspect]
     Active Substance: IOPAMIDOL
     Indication: COMPUTERISED TOMOGRAM THORAX
     Dosage: BATCH NUMBER CP6701C EXPIRY DATE 31/APR/2021; BATCH NUMBER CP6702A EXPIRY DATE 30/JUN/2021
     Route: 042
     Dates: start: 20161118, end: 20161118
  2. NIOPAM [Suspect]
     Active Substance: IOPAMIDOL
     Indication: SCAN WITH CONTRAST
     Dosage: BATCH NUMBER CP6701C EXPIRY DATE 31/APR/2021; BATCH NUMBER CP6702A EXPIRY DATE 30/JUN/2021
     Route: 042
     Dates: start: 20161118, end: 20161118

REACTIONS (2)
  - Anaphylactoid reaction [Recovered/Resolved]
  - Product quality issue [Unknown]

NARRATIVE: CASE EVENT DATE: 201611
